FAERS Safety Report 9256737 (Version 1)
Quarter: 2013Q2

REPORT INFORMATION
  Report Type: Spontaneous
  Country: KR (occurrence: KR)
  Receive Date: 20130426
  Receipt Date: 20130426
  Transmission Date: 20140414
  Serious: Yes (Other)
  Sender: FDA-Public Use
  Company Number: KR-009507513-1304KOR007189

PATIENT
  Age: 70 Year
  Sex: Female
  Weight: 51.3 kg

DRUGS (1)
  1. FOSAMAX PLUS D [Suspect]
     Dosage: 1 TABLET, ONCE A WEEK
     Dates: start: 20060623, end: 20130314

REACTIONS (3)
  - Osteonecrosis of jaw [Not Recovered/Not Resolved]
  - Osteomyelitis [Not Recovered/Not Resolved]
  - Dental implantation [Unknown]
